FAERS Safety Report 24395758 (Version 1)
Quarter: 2024Q4

REPORT INFORMATION
  Report Type: Spontaneous
  Country: TH (occurrence: TH)
  Receive Date: 20241004
  Receipt Date: 20241004
  Transmission Date: 20250114
  Serious: Yes (Other)
  Sender: ASTELLAS
  Company Number: TH-ASTELLAS-2024-AER-006016

PATIENT
  Age: 50 Year
  Sex: Male

DRUGS (2)
  1. PADCEV [Suspect]
     Active Substance: ENFORTUMAB VEDOTIN-EJFV
     Indication: Transitional cell carcinoma metastatic
     Dosage: D1, D8 AND D15 EVERY 28 DAYS (30 MG 1 VIAL + 20 MG 2 ?VIALS)
     Route: 042
  2. PADCEV [Suspect]
     Active Substance: ENFORTUMAB VEDOTIN-EJFV
     Dosage: 30 MG 2 VIALS (D8 OF CYCLE 2)
     Route: 042

REACTIONS (2)
  - Malignant neoplasm progression [Unknown]
  - Liver function test increased [Recovered/Resolved]
